FAERS Safety Report 5049270-X (Version None)
Quarter: 2006Q3

REPORT INFORMATION
  Report Type: 
  Country: None (occurrence: None)
  Receive Date: 20060707
  Receipt Date: 20060623
  Transmission Date: 20061208
  Serious: No
  Sender: FDA-Public Use
  Company Number: 2006S1004662

PATIENT
  Age: 37 Year
  Sex: Female

DRUGS (5)
  1. FENTANYL TRANSDERMAL SYSTEM [Suspect]
     Indication: BACK PAIN
     Dosage: 50 UG/HR;Q3D;TRANS
     Route: 062
     Dates: start: 20060501, end: 20060601
  2. FENTANYL TRANSDERMAL SYSTEM [Suspect]
     Indication: NECK PAIN
     Dosage: 50 UG/HR;Q3D;TRANS
     Route: 062
     Dates: start: 20060501, end: 20060601
  3. PARACETAMOL/HYDROCODONE [Concomitant]
  4. BITARTRATE [Concomitant]
  5. IBUPROFEN [Concomitant]

REACTIONS (7)
  - DRUG WITHDRAWAL SYNDROME [None]
  - HEADACHE [None]
  - INCORRECT DRUG ADMINISTRATION DURATION [None]
  - INTENTIONAL DRUG MISUSE [None]
  - NAUSEA [None]
  - PHARMACEUTICAL PRODUCT COMPLAINT [None]
  - VOMITING [None]
